FAERS Safety Report 6591556-1 (Version None)
Quarter: 2010Q1

REPORT INFORMATION
  Report Type: 
  Country: None (occurrence: None)
  Receive Date: 20100221
  Receipt Date: 20100216
  Transmission Date: 20100710
  Serious: Yes (Hospitalization)
  Sender: FDA-Public Use
  Company Number: AU-MERCK-1002USA02270

PATIENT
  Sex: Female

DRUGS (1)
  1. CANCIDAS [Suspect]
     Route: 065

REACTIONS (1)
  - DIABETES INSIPIDUS [None]
